FAERS Safety Report 6811053-5 (Version None)
Quarter: 2010Q2

REPORT INFORMATION
  Report Type: 
  Country: None (occurrence: None)
  Receive Date: 20100630
  Receipt Date: 20090209
  Transmission Date: 20101027
  Serious: No
  Sender: FDA-Public Use
  Company Number: US-PFIZER INC-2009168902

PATIENT
  Sex: Female

DRUGS (2)
  1. MICRONASE [Suspect]
     Dosage: UNK
  2. METFORMIN HCL [Suspect]
     Dosage: UNK

REACTIONS (1)
  - BLOOD GLUCOSE INCREASED [None]
